FAERS Safety Report 16907896 (Version 1)
Quarter: 2019Q4

REPORT INFORMATION
  Report Type: Spontaneous
  Country: US (occurrence: US)
  Receive Date: 20190819
  Receipt Date: 20190819
  Transmission Date: 20200122
  Serious: Yes (Hospitalization, Disabling, Other)
  Sender: FDA-Public Use
  Company Number: None

PATIENT
  Age: 46 Year
  Sex: Male
  Weight: 77.11 kg

DRUGS (2)
  1. LEVOFLOXACIN. [Suspect]
     Active Substance: LEVOFLOXACIN
     Indication: SINUSITIS
     Dosage: ?          QUANTITY:1 DF DOSAGE FORM;?
     Route: 048
     Dates: start: 20150615, end: 20150617
  2. TYLENOL COLD [Concomitant]

REACTIONS (11)
  - Vertigo [None]
  - Dysarthria [None]
  - Muscular weakness [None]
  - Guillain-Barre syndrome [None]
  - Sensory loss [None]
  - Fatigue [None]
  - Aphasia [None]
  - Confusional state [None]
  - Paralysis [None]
  - Dizziness [None]
  - Neuropathy peripheral [None]

NARRATIVE: CASE EVENT DATE: 20150616
